FAERS Safety Report 8417635-1 (Version None)
Quarter: 2012Q2

REPORT INFORMATION
  Report Type: 
  Country: None (occurrence: None)
  Receive Date: 20120606
  Receipt Date: 20120530
  Transmission Date: 20120825
  Serious: Yes (Other)
  Sender: FDA-Public Use
  Company Number: CA-ROCHE-1064255

PATIENT
  Sex: Female

DRUGS (7)
  1. SPIRIVA [Concomitant]
  2. XOLAIR [Suspect]
     Indication: ASTHMA
     Dosage: LAST INJECTION: 02/NOV/2011
     Route: 058
     Dates: start: 20110921
  3. OXEZE [Concomitant]
  4. FLUTICASONE FUROATE [Concomitant]
  5. VENTOLIN [Concomitant]
  6. ORTHOSIS [Concomitant]
  7. PULMICORT [Concomitant]

REACTIONS (19)
  - LOWER RESPIRATORY TRACT INFECTION [None]
  - OEDEMA PERIPHERAL [None]
  - HYPOAESTHESIA [None]
  - JOINT SWELLING [None]
  - PARAESTHESIA [None]
  - RHINORRHOEA [None]
  - DYSPNOEA [None]
  - ARTHRALGIA [None]
  - WHEEZING [None]
  - NEURALGIA [None]
  - BLOOD PRESSURE INCREASED [None]
  - ARTHRITIS [None]
  - SINUS HEADACHE [None]
  - COUGH [None]
  - LUMBAR SPINAL STENOSIS [None]
  - PAIN IN EXTREMITY [None]
  - BACK PAIN [None]
  - SPUTUM ABNORMAL [None]
  - PRURITUS [None]
